FAERS Safety Report 6251567-2 (Version None)
Quarter: 2009Q2

REPORT INFORMATION
  Report Type: 
  Country: None (occurrence: None)
  Receive Date: 20090630
  Receipt Date: 20090626
  Transmission Date: 20091009
  Serious: No
  Sender: FDA-Public Use
  Company Number: US-B.I. PHARMACEUTICALS,INC./RIDGEFIELD-2009-BP-07763BP

PATIENT
  Age: 72 Year
  Sex: Male

DRUGS (5)
  1. FLOMAX [Suspect]
     Indication: BENIGN PROSTATIC HYPERPLASIA
     Dosage: 0.4 MG
     Route: 048
     Dates: start: 20090101
  2. METFORMIN HCL [Concomitant]
     Indication: DIABETES MELLITUS
  3. A STATIN MED [Concomitant]
     Indication: BLOOD CHOLESTEROL INCREASED
  4. AMLODIPINE [Concomitant]
     Indication: HYPERTENSION
  5. LUCINOPRIL [Concomitant]
     Indication: HYPERTENSION

REACTIONS (3)
  - ABDOMINAL PAIN LOWER [None]
  - RESIDUAL URINE [None]
  - URINARY HESITATION [None]
